FAERS Safety Report 5549675-4 (Version None)
Quarter: 2007Q4

REPORT INFORMATION
  Report Type: 
  Country: None (occurrence: None)
  Receive Date: 20071210
  Receipt Date: 20071126
  Transmission Date: 20080405
  Serious: Yes (Hospitalization)
  Sender: FDA-Public Use
  Company Number: 2007AD000114

PATIENT
  Age: 67 Year
  Sex: Male

DRUGS (3)
  1. CEPHALEXIN [Suspect]
     Indication: WOUND TREATMENT
     Dosage: 500 MG;Q6H
  2. ALBUTEROL [Suspect]
  3. ANTIBIOTICS FOR TOPICAL [Concomitant]

REACTIONS (6)
  - KLEBSIELLA INFECTION [None]
  - MYIASIS [None]
  - STREPTOCOCCAL INFECTION [None]
  - WOUND DEHISCENCE [None]
  - WOUND INFECTION [None]
  - WOUND NECROSIS [None]
